FAERS Safety Report 21722237 (Version 1)
Quarter: 2022Q4

REPORT INFORMATION
  Report Type: Report from Study
  Country: US (occurrence: US)
  Receive Date: 20221213
  Receipt Date: 20221213
  Transmission Date: 20230113
  Serious: Yes (Other)
  Sender: FDA-Public Use
  Company Number: US-ABBVIE-4232847

PATIENT
  Age: 70 Year
  Sex: Male

DRUGS (18)
  1. IMBRUVICA [Suspect]
     Active Substance: IBRUTINIB
     Indication: Chronic lymphocytic leukaemia
     Dosage: END DATE OF POST PROCEDURAL CONSTIPATION WAS 2022
     Route: 048
     Dates: start: 2020, end: 2022
  2. AMLODIPINE [Concomitant]
     Active Substance: AMLODIPINE BESYLATE
     Indication: Product used for unknown indication
  3. DIETARY SUPPLEMENT [Concomitant]
     Active Substance: DIETARY SUPPLEMENT
     Indication: Product used for unknown indication
  4. CARVEDILOL [Concomitant]
     Active Substance: CARVEDILOL
     Indication: Product used for unknown indication
     Dosage: ER ORAL CAPSULE
  5. BETAHISTINE [Concomitant]
     Active Substance: BETAHISTINE
     Indication: Product used for unknown indication
     Dosage: POWDER
  6. METFORMIN HYDROCHLORIDE [Concomitant]
     Active Substance: METFORMIN HYDROCHLORIDE
     Indication: Product used for unknown indication
     Dosage: ER ORAL TABLET EXTEND
  7. OXYCODONE HCL STADA [Concomitant]
     Indication: Product used for unknown indication
     Dosage: ORAL SOLUTION 5 MG/5M
  8. TERAZOSIN [Concomitant]
     Active Substance: TERAZOSIN HYDROCHLORIDE
     Indication: Product used for unknown indication
     Dosage: ORAL CAPSULE 5 MG
  9. SERTRALINE [Concomitant]
     Active Substance: SERTRALINE HYDROCHLORIDE
     Indication: Product used for unknown indication
  10. DYAZIDE [Concomitant]
     Active Substance: HYDROCHLOROTHIAZIDE\TRIAMTERENE
     Indication: Product used for unknown indication
     Dosage: ORAL CAPSULE 37.5-25 MG
  11. Vitamin D3 Ol [Concomitant]
     Indication: Product used for unknown indication
     Dosage: ORAL TABLET 50 MCG (2000
  12. ZOLOFT [Concomitant]
     Active Substance: SERTRALINE HYDROCHLORIDE
     Indication: Product used for unknown indication
  13. Ach atorvastatin calcium [Concomitant]
     Indication: Product used for unknown indication
     Dosage: ORAL TABLET 80
  14. ZOFRAN [Concomitant]
     Active Substance: ONDANSETRON HYDROCHLORIDE
     Indication: Product used for unknown indication
  15. GABAPENTIN 2K [Concomitant]
     Indication: Product used for unknown indication
     Dosage: ORAL CAPSULE 400 MG
  16. DOCUSATE SODIUM [Concomitant]
     Active Substance: DOCUSATE SODIUM
     Indication: Product used for unknown indication
     Dosage: ORAL CAPSULE 250 MG
  17. ASPIRIN [Concomitant]
     Active Substance: ASPIRIN
     Indication: Product used for unknown indication
     Dosage: 81 ORAL TABLET CHEWABLE 81
  18. VITAMIN B-COMPLEX [Concomitant]
     Active Substance: DEXPANTHENOL\NIACINAMIDE\PYRIDOXINE HYDROCHLORIDE\RIBOFLAVIN 5^-PHOSPHATE SODIUM\THIAMINE HYDROCHLOR
     Indication: Product used for unknown indication

REACTIONS (2)
  - Knee arthroplasty [Recovering/Resolving]
  - Post procedural constipation [Recovered/Resolved]

NARRATIVE: CASE EVENT DATE: 20221101
